FAERS Safety Report 4732810-5 (Version None)
Quarter: 2005Q3

REPORT INFORMATION
  Report Type: 
  Country: None (occurrence: None)
  Receive Date: 20050801
  Receipt Date: 20050801
  Transmission Date: 20060218
  Serious: No
  Sender: FDA-Public Use
  Company Number: None

PATIENT
  Age: 28 Year
  Sex: Female

DRUGS (1)
  1. METHYLPREDNISOLONE SODIUM SUCCINATE [Suspect]
     Dosage: 1 GRAM    INTRAVENOUS
     Route: 042
     Dates: start: 20050729, end: 20050729

REACTIONS (4)
  - OEDEMA PERIPHERAL [None]
  - ORAL PRURITUS [None]
  - PRURITUS [None]
  - SWOLLEN TONGUE [None]
